FAERS Safety Report 6855699-7 (Version None)
Quarter: 2010Q3

REPORT INFORMATION
  Report Type: 
  Country: None (occurrence: None)
  Receive Date: 20100719
  Receipt Date: 20091027
  Transmission Date: 20110219
  Serious: No
  Sender: FDA-Public Use
  Company Number: US-KINGPHARMUSA00001-K200901335

PATIENT
  Age: 60 Year
  Sex: Female
  Weight: 52.154 kg

DRUGS (4)
  1. LEVOXYL [Suspect]
     Indication: HYPOTHYROIDISM
     Dosage: UNK
     Route: 048
     Dates: start: 20090901, end: 20091027
  2. BOTOX [Suspect]
     Indication: TORTICOLLIS
     Dosage: UNK, Q3MONTHS
  3. VALIUM [Concomitant]
     Indication: TORTICOLLIS
  4. KLONOPIN [Concomitant]
     Indication: TORTICOLLIS

REACTIONS (2)
  - MUSCLE SPASMS [None]
  - PAIN [None]
